FAERS Safety Report 9877048 (Version 1)
Quarter: 2014Q1

REPORT INFORMATION
  Report Type: Spontaneous
  Country: US (occurrence: US)
  Receive Date: 20140206
  Receipt Date: 20140206
  Transmission Date: 20141002
  Serious: No
  Sender: FDA-Public Use
  Company Number: US-PFIZER INC-2014033676

PATIENT
  Age: 77 Year
  Sex: Female

DRUGS (1)
  1. SUTENT [Suspect]
     Indication: SMALL INTESTINE CARCINOMA
     Dosage: 25 MG, 1X/DAY
     Dates: start: 20131223

REACTIONS (3)
  - Disease progression [Unknown]
  - Small intestine carcinoma [Unknown]
  - Off label use [Unknown]
